FAERS Safety Report 19213250 (Version 1)
Quarter: 2021Q2

REPORT INFORMATION
  Report Type: Report from Study
  Country: RS (occurrence: RS)
  Receive Date: 20210504
  Receipt Date: 20210504
  Transmission Date: 20210717
  Serious: Yes (Hospitalization)
  Sender: FDA-Public Use
  Company Number: RS-RIGEL PHARMACEUTICALS, INC.-2021FOS000243

PATIENT
  Sex: Female
  Weight: 99 kg

DRUGS (1)
  1. FOSTAMATINIB DISODIUM [Suspect]
     Active Substance: FOSTAMATINIB DISODIUM
     Indication: WARM TYPE HAEMOLYTIC ANAEMIA
     Dosage: 150 MG, QD
     Route: 048
     Dates: start: 20210212

REACTIONS (1)
  - Hepatitis acute [Recovering/Resolving]

NARRATIVE: CASE EVENT DATE: 20210421
